FAERS Safety Report 8248791-6 (Version None)
Quarter: 2012Q1

REPORT INFORMATION
  Report Type: 
  Country: None (occurrence: None)
  Receive Date: 20120331
  Receipt Date: 20120324
  Transmission Date: 20120608
  Serious: Yes (Life-Threatening, Hospitalization)
  Sender: FDA-Public Use
  Company Number: PHEH2012US006728

PATIENT
  Sex: Female
  Weight: 70.295 kg

DRUGS (5)
  1. CELEXA [Concomitant]
  2. BACLOFEN [Concomitant]
  3. OXYBUTYNIN [Concomitant]
  4. GILENYA [Suspect]
     Indication: MULTIPLE SCLEROSIS
     Dosage: 0.5 MG, QD
     Route: 048
     Dates: start: 20111115, end: 20111211
  5. LEVOTHYROXINE SODIUM [Concomitant]

REACTIONS (4)
  - HEADACHE [None]
  - ROAD TRAFFIC ACCIDENT [None]
  - HYPERTENSION [None]
  - LOSS OF CONSCIOUSNESS [None]
